FAERS Safety Report 18293426 (Version 2)
Quarter: 2021Q1

REPORT INFORMATION
  Report Type: Other
  Country: CA (occurrence: CA)
  Receive Date: 20200922
  Receipt Date: 20210210
  Transmission Date: 20210419
  Serious: Yes (Hospitalization, Other)
  Sender: FDA-Public Use
  Company Number: CA-CELLTRION INC.-2020CA026357

PATIENT

DRUGS (40)
  1. HYDROMORPHONE [Concomitant]
     Active Substance: HYDROMORPHONE
  2. KEPPRA [Concomitant]
     Active Substance: LEVETIRACETAM
  3. LEVETIRACETAM. [Concomitant]
     Active Substance: LEVETIRACETAM
  4. SEPTRA DS [Concomitant]
     Active Substance: SULFAMETHOXAZOLE\TRIMETHOPRIM
  5. BENADRYL [Concomitant]
     Active Substance: DIPHENHYDRAMINE HYDROCHLORIDE
     Indication: PREMEDICATION
     Dosage: 50.0 MILLIGRAM
     Route: 048
  6. CANNABIS SATIVA [Concomitant]
     Active Substance: CANNABIS SATIVA FLOWERING TOP
  7. ERGOCALCIFEROL. [Concomitant]
     Active Substance: ERGOCALCIFEROL
  8. CLONAZEPAM. [Concomitant]
     Active Substance: CLONAZEPAM
  9. METHYLPREDNISOLONE SODIUM SUCCINATE. [Concomitant]
     Active Substance: METHYLPREDNISOLONE SODIUM SUCCINATE
     Indication: PREMEDICATION
     Dosage: 100.0 MILLIGRAM
     Route: 042
  10. ACETAMINOPHEN. [Concomitant]
     Active Substance: ACETAMINOPHEN
  11. HYDRALAZINE [Concomitant]
     Active Substance: HYDRALAZINE HYDROCHLORIDE
  12. LEVOTHYROXINE. [Concomitant]
     Active Substance: LEVOTHYROXINE
  13. METOPROLOL. [Concomitant]
     Active Substance: METOPROLOL
  14. TERAZOSIN [Concomitant]
     Active Substance: TERAZOSIN HYDROCHLORIDE
  15. IRBESARTAN. [Concomitant]
     Active Substance: IRBESARTAN
  16. RITUXIMAB (UNKNOWN) [Suspect]
     Active Substance: RITUXIMAB
     Indication: VASCULITIS
     Dosage: UNK
     Route: 042
  17. ESCITALOPRAM [Concomitant]
     Active Substance: ESCITALOPRAM OXALATE
  18. NITROGLYCERIN. [Concomitant]
     Active Substance: NITROGLYCERIN
  19. PANTOPRAZOLE [Concomitant]
     Active Substance: PANTOPRAZOLE
  20. TYLENOL [Concomitant]
     Active Substance: ACETAMINOPHEN
     Indication: PREMEDICATION
     Dosage: 650.0 MILLIGRAM
     Route: 065
  21. CALCIUM [Concomitant]
     Active Substance: CALCIUM
  22. GABAPENTIN. [Concomitant]
     Active Substance: GABAPENTIN
  23. DOMPERIDONE [Concomitant]
     Active Substance: DOMPERIDONE
  24. ADVAIR HFA [Concomitant]
     Active Substance: FLUTICASONE PROPIONATE\SALMETEROL XINAFOATE
  25. ALENDRONATE SODIUM. [Concomitant]
     Active Substance: ALENDRONATE SODIUM
  26. AMITRIPTYLINE [Concomitant]
     Active Substance: AMITRIPTYLINE
  27. DARBEPOETIN ALFA [Concomitant]
     Active Substance: DARBEPOETIN ALFA
  28. FUSIDATE SODIUM [Concomitant]
     Active Substance: FUSIDATE SODIUM
  29. OLMESARTAN [Concomitant]
     Active Substance: OLMESARTAN
  30. RANITIDINE. [Concomitant]
     Active Substance: RANITIDINE
  31. SULFAMETHOXAZOLE [Concomitant]
     Active Substance: SULFAMETHOXAZOLE
  32. TIOTROPIUM [Concomitant]
     Active Substance: TIOTROPIUM
  33. FERROUS GLUCONATE [Concomitant]
     Active Substance: FERROUS GLUCONATE
  34. TAMSULOSIN [Concomitant]
     Active Substance: TAMSULOSIN
  35. RITUXIMAB (UNKNOWN) [Suspect]
     Active Substance: RITUXIMAB
     Dosage: 1000 MG
     Route: 042
  36. RITUXIMAB (UNKNOWN) [Suspect]
     Active Substance: RITUXIMAB
     Dosage: 500.0 MILLIGRAM, 1 EVERY 6 MONTHS
     Route: 042
  37. AMLODIPINE [Concomitant]
     Active Substance: AMLODIPINE BESYLATE
  38. ATIVAN [Concomitant]
     Active Substance: LORAZEPAM
  39. LANSOPRAZOLE. [Concomitant]
     Active Substance: LANSOPRAZOLE
  40. ROSUVASTATIN. [Concomitant]
     Active Substance: ROSUVASTATIN

REACTIONS (16)
  - Encephalopathy [Not Recovered/Not Resolved]
  - Tremor [Not Recovered/Not Resolved]
  - Contusion [Not Recovered/Not Resolved]
  - Illness [Not Recovered/Not Resolved]
  - Upper gastrointestinal haemorrhage [Not Recovered/Not Resolved]
  - Blood potassium abnormal [Not Recovered/Not Resolved]
  - Crepitations [Not Recovered/Not Resolved]
  - Lung opacity [Not Recovered/Not Resolved]
  - Fall [Not Recovered/Not Resolved]
  - Bronchitis [Not Recovered/Not Resolved]
  - Disorientation [Not Recovered/Not Resolved]
  - Ligament injury [Not Recovered/Not Resolved]
  - Cough [Not Recovered/Not Resolved]
  - Hip fracture [Not Recovered/Not Resolved]
  - Oedema peripheral [Not Recovered/Not Resolved]
  - Muscle spasms [Not Recovered/Not Resolved]
